FAERS Safety Report 5452317-X (Version None)
Quarter: 2007Q3

REPORT INFORMATION
  Report Type: 
  Country: None (occurrence: None)
  Receive Date: 20070912
  Receipt Date: 20070912
  Transmission Date: 20080115
  Serious: No
  Sender: FDA-Public Use
  Company Number: None

PATIENT
  Age: 46 Year
  Sex: Male
  Weight: 105 kg

DRUGS (1)
  1. ARIXTRA 7.5 GLAXOSMITH KLINE [Suspect]
     Indication: PULMONARY EMBOLISM
     Dosage: 7.5 DAILY SQ
     Route: 058
     Dates: start: 20070904, end: 20070911

REACTIONS (1)
  - WEIGHT INCREASED [None]
